FAERS Safety Report 9934758 (Version 1)
Quarter: 2014Q1

REPORT INFORMATION
  Report Type: Spontaneous
  Country: US (occurrence: US)
  Receive Date: 20140228
  Receipt Date: 20140228
  Transmission Date: 20141002
  Serious: No
  Sender: FDA-Public Use
  Company Number: US-ASTRAZENECA-2013SE71449

PATIENT
  Sex: Male

DRUGS (2)
  1. TOPROL-XL [Suspect]
     Route: 048
  2. TOPROL-XL [Suspect]
     Dosage: 25 MG, 2 DF
     Route: 048
     Dates: start: 20130923

REACTIONS (4)
  - Extra dose administered [Unknown]
  - Vomiting [Unknown]
  - Dizziness [Unknown]
  - Heart rate decreased [Unknown]
